FAERS Safety Report 8216290-3 (Version None)
Quarter: 2012Q1

REPORT INFORMATION
  Report Type: 
  Country: None (occurrence: None)
  Receive Date: 20120316
  Receipt Date: 20120308
  Transmission Date: 20120608
  Serious: Yes (Hospitalization)
  Sender: FDA-Public Use
  Company Number: PHEH2012US004352

PATIENT
  Sex: Male

DRUGS (1)
  1. EXJADE [Suspect]
     Indication: IRON OVERLOAD
     Dosage: 100 MG, QD
     Route: 048

REACTIONS (3)
  - SICKLE CELL ANAEMIA WITH CRISIS [None]
  - PYREXIA [None]
  - PAIN [None]
